FAERS Safety Report 16796954 (Version 3)
Quarter: 2021Q2

REPORT INFORMATION
  Report Type: Report from Study
  Country: GB (occurrence: DE)
  Receive Date: 20190911
  Receipt Date: 20210601
  Transmission Date: 20210716
  Serious: Yes (Other)
  Sender: FDA-Public Use
  Company Number: GB-SAMSUNG BIOEPIS-SB-2019-26406

PATIENT
  Sex: Female

DRUGS (1)
  1. IMRALDI [Suspect]
     Active Substance: ADALIMUMAB
     Indication: ANKYLOSING SPONDYLITIS
     Route: 058

REACTIONS (9)
  - Exophthalmos [Unknown]
  - Pertussis [Unknown]
  - Off label use [Unknown]
  - Asthma [Unknown]
  - Immunosuppression [Unknown]
  - Photophobia [Unknown]
  - Influenza [Unknown]
  - Erythema [Unknown]
  - Respiratory tract infection viral [Unknown]
